FAERS Safety Report 24414585 (Version 1)
Quarter: 2024Q4

REPORT INFORMATION
  Report Type: Spontaneous
  Country: DE (occurrence: DE)
  Receive Date: 20241009
  Receipt Date: 20241009
  Transmission Date: 20250115
  Serious: No
  Sender: ALKEM
  Company Number: None

PATIENT
  Age: 45 Year
  Sex: Female
  Weight: 85 kg

DRUGS (1)
  1. IBUPROFEN [Suspect]
     Active Substance: IBUPROFEN
     Indication: Tendonitis
     Dosage: 400 MILLIGRAM BID (EVERY 0.5 DAY) FILM-COATED TABLET
     Route: 048
     Dates: start: 20240715, end: 20240721

REACTIONS (3)
  - Tinnitus [Not Recovered/Not Resolved]
  - Ear pain [Recovered/Resolved]
  - Ear discomfort [Recovered/Resolved]

NARRATIVE: CASE EVENT DATE: 20240721
